FAERS Safety Report 11587934 (Version 1)
Quarter: 2015Q4

REPORT INFORMATION
  Report Type: Spontaneous
  Country: US (occurrence: US)
  Receive Date: 20151001
  Receipt Date: 20151001
  Transmission Date: 20160304
  Serious: No
  Sender: FDA-Public Use
  Company Number: US-MEDA-2015040002

PATIENT
  Age: 34 Month
  Sex: Female

DRUGS (3)
  1. FELBAMATE. [Suspect]
     Active Substance: FELBAMATE
  2. SABRIL [Suspect]
     Active Substance: VIGABATRIN
     Indication: INFANTILE SPASMS
     Route: 048
     Dates: start: 20120220
  3. SABRIL [Suspect]
     Active Substance: VIGABATRIN
     Indication: INFANTILE SPASMS
     Route: 048
     Dates: start: 201206, end: 20150219

REACTIONS (1)
  - Muscle twitching [Unknown]

NARRATIVE: CASE EVENT DATE: 20150223
